FAERS Safety Report 25684811 (Version 1)
Quarter: 2025Q3

REPORT INFORMATION
  Report Type: Spontaneous
  Country: US (occurrence: US)
  Receive Date: 20250815
  Receipt Date: 20250815
  Transmission Date: 20251021
  Serious: No
  Sender: ELI LILLY AND COMPANY
  Company Number: US-ELI_LILLY_AND_COMPANY-US202508009345

PATIENT
  Age: 42 Year
  Sex: Female

DRUGS (2)
  1. ZEPBOUND [Suspect]
     Active Substance: TIRZEPATIDE
     Indication: Metabolic dysfunction-associated liver disease
     Route: 058
     Dates: start: 20250420
  2. ZEPBOUND [Suspect]
     Active Substance: TIRZEPATIDE
     Indication: Hyperinsulinaemia

REACTIONS (3)
  - Off label use [Unknown]
  - Ear infection [Unknown]
  - Pharyngitis [Unknown]

NARRATIVE: CASE EVENT DATE: 20250420
